FAERS Safety Report 9981821 (Version 1)
Quarter: 2014Q1

REPORT INFORMATION
  Report Type: Spontaneous
  Country: US (occurrence: US)
  Receive Date: 20140307
  Receipt Date: 20140307
  Transmission Date: 20141002
  Serious: Yes (Other)
  Sender: FDA-Public Use
  Company Number: US-PFIZER INC-2014063487

PATIENT
  Age: 53 Year
  Sex: Female
  Weight: 49.9 kg

DRUGS (5)
  1. LEVOXYL [Suspect]
     Dosage: 25 UG, 1X/DAY
     Dates: start: 2007
  2. LEVOXYL [Suspect]
     Dosage: 50 UG, 1X/DAY
  3. LEVOXYL [Suspect]
     Dosage: 75 UG, 1X/DAY
  4. LEVOXYL [Suspect]
     Dosage: 100 UG, 1X/DAY
     Dates: end: 201302
  5. LEVOXYL [Suspect]
     Dosage: UNK
     Dates: end: 201302

REACTIONS (1)
  - Thyroid cancer [Unknown]
